FAERS Safety Report 14115304 (Version 1)
Quarter: 2017Q4

REPORT INFORMATION
  Report Type: Spontaneous
  Country: US (occurrence: US)
  Receive Date: 20171023
  Receipt Date: 20171023
  Transmission Date: 20180321
  Serious: No
  Sender: FDA-Public Use
  Company Number: US-ALLERGAN-1703191US

PATIENT
  Age: 81 Year
  Sex: Female
  Weight: 62.59 kg

DRUGS (1)
  1. LINZESS [Suspect]
     Active Substance: LINACLOTIDE
     Indication: CONSTIPATION
     Dosage: 145 ?G, UNK
     Route: 048
     Dates: start: 201611

REACTIONS (4)
  - Off label use [Unknown]
  - Anorectal discomfort [Not Recovered/Not Resolved]
  - Pruritus [Not Recovered/Not Resolved]
  - Proctalgia [Not Recovered/Not Resolved]
